FAERS Safety Report 7984183-2 (Version None)
Quarter: 2011Q4

REPORT INFORMATION
  Report Type: 
  Country: None (occurrence: None)
  Receive Date: 20111214
  Receipt Date: 20111129
  Transmission Date: 20120403
  Serious: Yes (Life-Threatening, Other)
  Sender: FDA-Public Use
  Company Number: 2011SGN00331

PATIENT
  Age: 38 Year
  Sex: Male

DRUGS (1)
  1. ADCETRIS [Suspect]
     Indication: HODGKIN'S DISEASE
     Dates: start: 20110101, end: 20110101

REACTIONS (2)
  - CARDIOGENIC SHOCK [None]
  - THROMBOCYTOPENIA [None]
